FAERS Safety Report 25866349 (Version 1)
Quarter: 2025Q3

REPORT INFORMATION
  Report Type: Report from Study
  Country: GB (occurrence: GB)
  Receive Date: 20250930
  Receipt Date: 20250930
  Transmission Date: 20251021
  Serious: Yes (Other)
  Sender: SPRINGWORKS THERAPEUTIC
  Company Number: GB-SPRINGWORKS THERAPEUTICS-SW-003385

PATIENT

DRUGS (6)
  1. NIROGACESTAT [Suspect]
     Active Substance: NIROGACESTAT
     Indication: Desmoid tumour
     Dosage: 130 MILLIGRAM, BID
     Route: 048
     Dates: start: 20231102
  2. NIROGACESTAT [Suspect]
     Active Substance: NIROGACESTAT
     Dates: start: 20250728, end: 20250822
  3. NIROGACESTAT [Suspect]
     Active Substance: NIROGACESTAT
     Dates: end: 20250828
  4. PIZOTYLINE [Concomitant]
     Active Substance: PIZOTYLINE
     Indication: Product used for unknown indication
  5. DESOGESTREL [Concomitant]
     Active Substance: DESOGESTREL
     Indication: Product used for unknown indication
  6. SUMATRIPTAN [Concomitant]
     Active Substance: SUMATRIPTAN
     Indication: Product used for unknown indication

REACTIONS (1)
  - Hidradenitis [Not Recovered/Not Resolved]

NARRATIVE: CASE EVENT DATE: 20250724
